FAERS Safety Report 5957895-X (Version None)
Quarter: 2008Q4

REPORT INFORMATION
  Report Type: 
  Country: None (occurrence: None)
  Receive Date: 20081119
  Receipt Date: 20081113
  Transmission Date: 20090506
  Serious: Yes (Other)
  Sender: FDA-Public Use
  Company Number: US-BAYER-200827594NA

PATIENT
  Age: 49 Year
  Sex: Male

DRUGS (2)
  1. CIPRO [Suspect]
     Dates: start: 20060101
  2. ORAL STEROIDS [Concomitant]

REACTIONS (1)
  - TENDON RUPTURE [None]
